FAERS Safety Report 14911595 (Version 1)
Quarter: 2018Q2

REPORT INFORMATION
  Report Type: Spontaneous
  Country: CA (occurrence: CA)
  Receive Date: 20180518
  Receipt Date: 20180518
  Transmission Date: 20180711
  Serious: Yes (Other)
  Sender: FDA-Public Use
  Company Number: CA-TEVA-2018-CA-893634

PATIENT
  Age: 56 Year
  Sex: Female

DRUGS (1)
  1. TEVA-VENLAFAXINE XR [Suspect]
     Active Substance: VENLAFAXINE HYDROCHLORIDE
     Route: 065

REACTIONS (4)
  - Product substitution issue [Unknown]
  - Depressive symptom [Unknown]
  - Depressed mood [Unknown]
  - Anxiety [Unknown]
